FAERS Safety Report 9063481 (Version 1)
Quarter: 2013Q1

REPORT INFORMATION
  Report Type: Report from Study
  Country: US (occurrence: US)
  Receive Date: 20130131
  Receipt Date: 20130131
  Transmission Date: 20140127
  Serious: Yes (Other)
  Sender: FDA-Public Use
  Company Number: US-ABBOTT-12P-163-0971340-00

PATIENT
  Age: 44 Year
  Sex: Female
  Weight: 76.27 kg

DRUGS (4)
  1. HUMIRA 40 MG/0.8 ML PEN [Suspect]
     Indication: PSORIASIS
     Dates: start: 201006
  2. LEVOTHYROXINE [Concomitant]
     Indication: HYPOTHYROIDISM
     Dosage: 125 MCG DAILY
     Route: 048
  3. CYTOMEL [Concomitant]
     Indication: HYPOTHYROIDISM
     Dosage: 5 MCG DAILY
     Route: 048
  4. WELLBUTRIN [Concomitant]
     Indication: DEPRESSION
     Dosage: 300 MG DAILY
     Route: 048

REACTIONS (3)
  - Mammoplasty [Recovered/Resolved]
  - Arthralgia [Recovered/Resolved]
  - Lupus-like syndrome [Not Recovered/Not Resolved]
